FAERS Safety Report 9708665 (Version 1)
Quarter: 2013Q4

REPORT INFORMATION
  Report Type: Spontaneous
  Country: DE (occurrence: None)
  Receive Date: 20131121
  Receipt Date: 20131121
  Transmission Date: 20140711
  Serious: Yes (Life-Threatening)
  Sender: FDA-Public Use
  Company Number: AUR-APL-2013-09414

PATIENT
  Age: 62 Year
  Sex: Male

DRUGS (7)
  1. CLOPIDOGREL [Suspect]
     Indication: CORONARY ARTERIAL STENT INSERTION
  2. SIMVASTATIN (SIMVASTATIN) [Suspect]
     Indication: CORONARY ARTERY DISEASE
  3. ALLOPURINOL [Concomitant]
  4. ASS [Concomitant]
  5. AMLODIPINE (AMLODIPINE) [Concomitant]
  6. VALSARTAN (VALSARTAN) [Concomitant]
  7. TORASEMID (TORASEMIDE) [Concomitant]

REACTIONS (4)
  - Renal failure acute [None]
  - Subacute hepatic failure [None]
  - Liver transplant [None]
  - Toxicity to various agents [None]
